FAERS Safety Report 4726317-9 (Version None)
Quarter: 2005Q3

REPORT INFORMATION
  Report Type: 
  Country: None (occurrence: None)
  Receive Date: 20050727
  Receipt Date: 20050421
  Transmission Date: 20060218
  Serious: Yes (Hospitalization)
  Sender: FDA-Public Use
  Company Number: FR-ROCHE-402554

PATIENT
  Age: 41 Year
  Sex: Male

DRUGS (4)
  1. PEGASYS [Suspect]
     Indication: HEPATITIS C
     Route: 058
     Dates: start: 20041005, end: 20041231
  2. COPEGUS [Suspect]
     Indication: HEPATITIS C
     Route: 048
     Dates: start: 20041005, end: 20041231
  3. IZILOX [Suspect]
     Route: 048
     Dates: start: 20041230, end: 20041231
  4. COMBIVIR [Concomitant]
     Indication: HIV INFECTION
     Route: 048
     Dates: start: 19981201, end: 20041231

REACTIONS (8)
  - EPISTAXIS [None]
  - GINGIVAL PAIN [None]
  - HEPATOMEGALY [None]
  - PANCYTOPENIA [None]
  - PETECHIAE [None]
  - PRODUCTIVE COUGH [None]
  - PYREXIA [None]
  - THROMBOCYTOPENIA [None]
